FAERS Safety Report 7700308-8 (Version None)
Quarter: 2011Q3

REPORT INFORMATION
  Report Type: 
  Country: None (occurrence: None)
  Receive Date: 20110822
  Receipt Date: 20110810
  Transmission Date: 20111222
  Serious: Yes (Other)
  Sender: FDA-Public Use
  Company Number: PHEH2009US02468

PATIENT
  Sex: Female

DRUGS (17)
  1. AREDIA [Suspect]
     Indication: NEOPLASM MALIGNANT
  2. SYNTHROID [Concomitant]
     Route: 048
  3. THALOMID [Concomitant]
     Route: 048
  4. ALBUTEROL SULFATE [Concomitant]
     Route: 048
  5. CENTRUM SILVER [Concomitant]
     Route: 048
  6. PROCRIT [Concomitant]
  7. GLEEVEC [Concomitant]
     Route: 048
  8. CHLORHEXIDINE GLUCONATE [Concomitant]
  9. CLINDAMYCIN HCL [Concomitant]
     Dosage: 300 MG, Q6H
     Route: 048
     Dates: start: 20080522
  10. VIACTIV [Concomitant]
     Route: 048
  11. CIPROFLOXACIN HYDROCHLORIDE [Concomitant]
  12. VITAMIN D [Concomitant]
     Route: 048
  13. ZOMETA [Suspect]
     Indication: NEOPLASM MALIGNANT
  14. CLEOCIN HYDROCHLORIDE [Concomitant]
  15. ONDANSERTRON HYDROCHLORIDE [Concomitant]
  16. ATENOLOL [Concomitant]
     Route: 048
  17. PREVACID [Concomitant]

REACTIONS (27)
  - OSTEONECROSIS [None]
  - INJURY [None]
  - HYPERTENSION [None]
  - OCULAR HYPERAEMIA [None]
  - PAIN [None]
  - DEFORMITY [None]
  - LEUKAEMIA [None]
  - NEOPLASM MALIGNANT [None]
  - EYE PAIN [None]
  - FACIAL BONES FRACTURE [None]
  - DIPLOPIA [None]
  - ANXIETY [None]
  - CERUMEN IMPACTION [None]
  - OESOPHAGITIS [None]
  - DIZZINESS [None]
  - SINUSITIS [None]
  - TOOTHACHE [None]
  - ANHEDONIA [None]
  - EATING DISORDER [None]
  - MULTIPLE MYELOMA [None]
  - EYE SWELLING [None]
  - VISUAL IMPAIRMENT [None]
  - THYROID CANCER [None]
  - VERTIGO [None]
  - MIXED DEAFNESS [None]
  - MENINGIOMA [None]
  - DISABILITY [None]
